FAERS Safety Report 20009350 (Version 2)
Quarter: 2024Q3

REPORT INFORMATION
  Report Type: Report from Study
  Country: US (occurrence: US)
  Receive Date: 20211029
  Receipt Date: 20240821
  Transmission Date: 20241016
  Serious: No
  Sender: ACADIA PHARMACEUTICALS
  Company Number: US-ACADIA PHARMACEUTICALS INC.-ACA-2021-PIM-003573

PATIENT
  Age: 74 Year
  Sex: Male

DRUGS (21)
  1. NUPLAZID [Suspect]
     Active Substance: PIMAVANSERIN TARTRATE
     Indication: Parkinson^s disease psychosis
     Dosage: 34 MILLIGRAM, QD
     Route: 048
     Dates: start: 202108
  2. NUPLAZID [Suspect]
     Active Substance: PIMAVANSERIN TARTRATE
     Indication: Delusion
     Dosage: 34 MILLIGRAM, QD
     Route: 048
     Dates: start: 20210914
  3. NUPLAZID [Suspect]
     Active Substance: PIMAVANSERIN TARTRATE
     Indication: Hallucination
     Dosage: 34 MILLIGRAM QD
     Route: 048
  4. FORTEO [Concomitant]
     Active Substance: TERIPARATIDE
  5. ASPIRIN [Concomitant]
     Active Substance: ASPIRIN
  6. WELLBUTRIN [Concomitant]
     Active Substance: BUPROPION HYDROCHLORIDE
  7. SINEMET [Concomitant]
     Active Substance: CARBIDOPA\LEVODOPA
  8. CALCIUM [Concomitant]
     Active Substance: CALCIUM
  9. VITAMIN D NOS [Concomitant]
     Active Substance: CHOLECALCIFEROL\ERGOCALCIFEROL
  10. DIAZEPAM [Concomitant]
     Active Substance: DIAZEPAM
  11. AVODART [Concomitant]
     Active Substance: DUTASTERIDE
  12. OMEPRAZOLE [Concomitant]
     Active Substance: OMEPRAZOLE
  13. ENTACAPONE [Concomitant]
     Active Substance: ENTACAPONE
  14. FLORINEF ACETATE [Concomitant]
     Active Substance: FLUDROCORTISONE ACETATE
  15. HYDROCODONE [Concomitant]
     Active Substance: HYDROCODONE
  16. CLARITHROMYCIN [Concomitant]
     Active Substance: CLARITHROMYCIN
  17. ZOFRAN [Concomitant]
     Active Substance: ONDANSETRON HYDROCHLORIDE
  18. PRAVASTATIN [Concomitant]
     Active Substance: PRAVASTATIN
  19. SENNA LEAF [Concomitant]
     Active Substance: SENNA LEAF
  20. MELATONIN [Concomitant]
     Active Substance: MELATONIN
  21. ARICEPT [Concomitant]
     Active Substance: DONEPEZIL HYDROCHLORIDE

REACTIONS (8)
  - Tremor [Unknown]
  - Salivary hypersecretion [Unknown]
  - Sleep disorder [Unknown]
  - Salivary hypersecretion [Recovered/Resolved]
  - Drooling [Recovered/Resolved]
  - Hallucination [Recovering/Resolving]
  - Confusional state [Unknown]
  - Drug ineffective [Unknown]

NARRATIVE: CASE EVENT DATE: 20210610
